FAERS Safety Report 7250281-4 (Version None)
Quarter: 2011Q1

REPORT INFORMATION
  Report Type: 
  Country: None (occurrence: None)
  Receive Date: 20110128
  Receipt Date: 20110118
  Transmission Date: 20110831
  Serious: Yes (Hospitalization)
  Sender: FDA-Public Use
  Company Number: SI-ASTRAZENECA-2011SE04285

PATIENT
  Age: 50 Year
  Sex: Female
  Weight: 62 kg

DRUGS (7)
  1. NEXIUM [Suspect]
     Route: 048
  2. BONIVA [Concomitant]
     Route: 048
     Dates: start: 20080101
  3. MAREVAN [Interacting]
     Indication: ANTIPHOSPHOLIPID SYNDROME
     Route: 048
     Dates: end: 20101116
  4. MEDROL [Concomitant]
     Route: 048
  5. PRIMOTREN [Interacting]
     Indication: URINARY TRACT INFECTION
     Dosage: 80 MG/400 MG
     Route: 048
     Dates: start: 20101110, end: 20101116
  6. MEDROL [Concomitant]
     Indication: SYSTEMIC LUPUS ERYTHEMATOSUS
     Route: 048
     Dates: start: 20101001
  7. MAREVAN [Interacting]
     Route: 048
     Dates: start: 20101118

REACTIONS (3)
  - PROTHROMBIN TIME PROLONGED [None]
  - DRUG INTERACTION [None]
  - HAEMATURIA [None]
